FAERS Safety Report 15214942 (Version 2)
Quarter: 2018Q4

REPORT INFORMATION
  Report Type: Report from Study
  Country: BR (occurrence: BR)
  Receive Date: 20180730
  Receipt Date: 20181023
  Transmission Date: 20190204
  Serious: Yes (Other)
  Sender: FDA-Public Use
  Company Number: BR-ELI_LILLY_AND_COMPANY-BR201807013043

PATIENT
  Age: 67 Year
  Sex: Male

DRUGS (1)
  1. CETUXIMAB. [Suspect]
     Active Substance: CETUXIMAB
     Indication: COLORECTAL CANCER
     Dosage: 845 MG, OTHER
     Route: 042
     Dates: start: 20170901

REACTIONS (11)
  - Muscle atrophy [Unknown]
  - Respiratory tract infection [Unknown]
  - Pain [Unknown]
  - Weight decreased [Unknown]
  - Coagulopathy [Unknown]
  - Off label use [Unknown]
  - Malignant neoplasm progression [Not Recovered/Not Resolved]
  - Ear infection [Unknown]
  - Urinary tract infection [Unknown]
  - Blood disorder [Unknown]
  - Malaise [Unknown]
